FAERS Safety Report 10159270 (Version 3)
Quarter: 2014Q2

REPORT INFORMATION
  Report Type: Spontaneous
  Country: US (occurrence: US)
  Receive Date: 20140508
  Receipt Date: 20140527
  Transmission Date: 20141212
  Serious: Yes (Other)
  Sender: FDA-Public Use
  Company Number: US-JNJFOC-20140420465

PATIENT
  Sex: Female
  Weight: 83.92 kg

DRUGS (4)
  1. NUCYNTA [Suspect]
     Indication: MIGRAINE
     Route: 048
  2. NUCYNTA [Suspect]
     Indication: PAIN IN EXTREMITY
     Route: 048
  3. NORCO [Suspect]
     Indication: MIGRAINE
     Route: 065
  4. NORCO [Suspect]
     Indication: PAIN IN EXTREMITY
     Route: 065

REACTIONS (3)
  - Gout [Not Recovered/Not Resolved]
  - Liver disorder [Unknown]
  - Pain [Not Recovered/Not Resolved]
